FAERS Safety Report 11717456 (Version 4)
Quarter: 2015Q4

REPORT INFORMATION
  Report Type: Report from Study
  Country: US (occurrence: US)
  Receive Date: 20151110
  Receipt Date: 20151224
  Transmission Date: 20160304
  Serious: Yes (Other)
  Sender: FDA-Public Use
  Company Number: US-AMGEN-USASP2015118012

PATIENT
  Age: 43 Year
  Sex: Male
  Weight: 79.37 kg

DRUGS (1)
  1. ENBREL [Suspect]
     Active Substance: ETANERCEPT
     Indication: RHEUMATOID ARTHRITIS
     Dosage: 50 MG, WEEKLY
     Route: 065
     Dates: start: 20150727

REACTIONS (11)
  - Eye infection viral [Recovered/Resolved]
  - Cushingoid [Unknown]
  - Monarthritis [Unknown]
  - Device malfunction [Unknown]
  - Underdose [Unknown]
  - Tenderness [Unknown]
  - Conjunctivitis [Recovered/Resolved]
  - Condition aggravated [Recovered/Resolved]
  - Arthralgia [Unknown]
  - Rheumatoid arthritis [Unknown]
  - Oral herpes [Unknown]

NARRATIVE: CASE EVENT DATE: 2015
